FAERS Safety Report 21535060 (Version 2)
Quarter: 2022Q4

REPORT INFORMATION
  Report Type: Spontaneous
  Country: US (occurrence: US)
  Receive Date: 20221101
  Receipt Date: 20221109
  Transmission Date: 20230112
  Serious: No
  Sender: FDA-Public Use
  Company Number: US-PHARMING-PHAUS2022000755

PATIENT

DRUGS (2)
  1. RUCONEST [Suspect]
     Active Substance: HUMAN C1-ESTERASE INHIBITOR
     Indication: Hereditary angioedema
     Dosage: 3500 IU, EVERY 7 DAYS AS NEEDED
     Route: 042
     Dates: start: 20180203
  2. RUCONEST [Suspect]
     Active Substance: HUMAN C1-ESTERASE INHIBITOR
     Dosage: 3500 IU, EVERY 7 DAYS AS NEEDED
     Route: 042
     Dates: start: 20220713

REACTIONS (2)
  - Therapeutic product effect delayed [Unknown]
  - Condition aggravated [Unknown]
